FAERS Safety Report 4288773-2 (Version None)
Quarter: 2004Q1

REPORT INFORMATION
  Report Type: 
  Country: None (occurrence: None)
  Receive Date: 20040202
  Receipt Date: 20040115
  Transmission Date: 20041129
  Serious: Yes (Death)
  Sender: FDA-Public Use
  Company Number: 234868

PATIENT
  Age: 49 Year
  Sex: Female

DRUGS (3)
  1. NOVOSEVEN [Suspect]
     Indication: PULMONARY HAEMORRHAGE
     Dosage: 9.6 MG, INTRAVENOUS
     Route: 042
     Dates: start: 20031228, end: 20031229
  2. SOLU-MEDROL [Concomitant]
  3. VANCOMYCIN HCL [Concomitant]

REACTIONS (1)
  - DEATH [None]
